FAERS Safety Report 16465717 (Version 1)
Quarter: 2019Q2

REPORT INFORMATION
  Report Type: Spontaneous
  Country: AU (occurrence: AU)
  Receive Date: 20190621
  Receipt Date: 20190621
  Transmission Date: 20190711
  Serious: Yes (Other)
  Sender: FDA-Public Use
  Company Number: AU-OTSUKA-2019_023669

PATIENT
  Sex: Male

DRUGS (1)
  1. REXULTI [Suspect]
     Active Substance: BREXPIPRAZOLE
     Indication: AGGRESSION
     Dosage: 4 MG, QD
     Route: 065

REACTIONS (3)
  - Accident [Unknown]
  - Brain injury [Unknown]
  - Product use in unapproved indication [Unknown]
